FAERS Safety Report 5030640-0 (Version None)
Quarter: 2006Q2

REPORT INFORMATION
  Report Type: 
  Country: None (occurrence: None)
  Receive Date: 20060620
  Receipt Date: 20060606
  Transmission Date: 20061013
  Serious: Yes (Death)
  Sender: FDA-Public Use
  Company Number: GB-MERCK-0606GBR00027

PATIENT
  Age: 52 Year
  Sex: Male

DRUGS (2)
  1. CILASTATIN SODIUM AND IMIPENEM [Suspect]
     Route: 051
     Dates: start: 20030101, end: 20030101
  2. METRONIDAZOLE [Concomitant]
     Route: 065
     Dates: start: 20030101, end: 20030101

REACTIONS (9)
  - COLITIS PSEUDOMEMBRANOUS [None]
  - FISTULA [None]
  - GANGRENE [None]
  - GASTRITIS [None]
  - GRAFT INFECTION [None]
  - INFECTIVE ANEURYSM [None]
  - LARGE INTESTINE PERFORATION [None]
  - SEPTIC EMBOLUS [None]
  - SPLENIC INFARCTION [None]
